FAERS Safety Report 6620488-5 (Version None)
Quarter: 2010Q1

REPORT INFORMATION
  Report Type: 
  Country: None (occurrence: None)
  Receive Date: 20100309
  Receipt Date: 20100305
  Transmission Date: 20100710
  Serious: Yes (Life-Threatening, Hospitalization, Other)
  Sender: FDA-Public Use
  Company Number: GB-B.I. PHARMACEUTICALS,INC./RIDGEFIELD-2010-UK-00217UK

PATIENT
  Age: 83 Year
  Sex: Male
  Weight: 57.5 kg

DRUGS (11)
  1. DIPYRIDAMOLE [Suspect]
     Indication: TRANSIENT ISCHAEMIC ATTACK
     Dosage: 400 MG
     Route: 048
     Dates: end: 20091124
  2. ASPIRIN [Suspect]
     Indication: ANGINA PECTORIS
     Dosage: 75 MG
     Route: 048
     Dates: end: 20091124
  3. ASPIRIN [Suspect]
     Indication: PERIPHERAL VASCULAR DISORDER
  4. ASPIRIN [Suspect]
     Indication: TRANSIENT ISCHAEMIC ATTACK
  5. AMLODIPINE [Concomitant]
     Indication: ANGINA PECTORIS
     Dosage: 5 MG
     Route: 048
  6. ATORVASTATIN CALCIUM [Concomitant]
     Indication: ANGINA PECTORIS
     Dosage: 10 MG
     Route: 048
  7. ATORVASTATIN CALCIUM [Concomitant]
     Indication: PERIPHERAL VASCULAR DISORDER
  8. ATORVASTATIN CALCIUM [Concomitant]
     Indication: TRANSIENT ISCHAEMIC ATTACK
  9. GLYCERYL TRINITRATE [Concomitant]
     Indication: ANGINA PECTORIS
  10. ISOSORBIDE MONONITRATE [Concomitant]
     Indication: ANGINA PECTORIS
     Dosage: 120 MG
     Route: 048
  11. NICORANDIL [Concomitant]
     Indication: ANGINA PECTORIS
     Dosage: 40 MG
     Route: 048

REACTIONS (3)
  - GASTROINTESTINAL HAEMORRHAGE [None]
  - HAEMOGLOBIN DECREASED [None]
  - MELAENA [None]
